FAERS Safety Report 9799276 (Version 1)
Quarter: 2014Q1

REPORT INFORMATION
  Report Type: Spontaneous
  Country: US (occurrence: None)
  Receive Date: 20140103
  Receipt Date: 20140103
  Transmission Date: 20141002
  Serious: No
  Sender: FDA-Public Use
  Company Number: None

PATIENT
  Age: 56 Year
  Sex: Female
  Weight: 60.78 kg

DRUGS (2)
  1. MIRVASO, GALDERMA [Suspect]
     Indication: ROSACEA
     Dosage: PEA SIZE AMOUNT, ON THE SKIN
     Dates: start: 20131205, end: 20131206
  2. MIRVASO, GALDERMA [Suspect]
     Indication: ERYTHEMA
     Dosage: PEA SIZE AMOUNT, ON THE SKIN
     Dates: start: 20131205, end: 20131206

REACTIONS (4)
  - Pallor [None]
  - Headache [None]
  - Erythema [None]
  - Condition aggravated [None]
